FAERS Safety Report 16843367 (Version 3)
Quarter: 2020Q3

REPORT INFORMATION
  Report Type: Spontaneous
  Country: US (occurrence: US)
  Receive Date: 20190924
  Receipt Date: 20200829
  Transmission Date: 20201102
  Serious: Yes (Other)
  Sender: FDA-Public Use
  Company Number: US-GILEAD-2019-0429716

PATIENT
  Age: 35 Year
  Sex: Female
  Weight: 122 kg

DRUGS (89)
  1. VIREAD [Suspect]
     Active Substance: TENOFOVIR DISOPROXIL FUMARATE
     Indication: HIV INFECTION
     Dosage: UNK
     Route: 048
     Dates: start: 2002, end: 2018
  2. ISENTRESS [Concomitant]
     Active Substance: RALTEGRAVIR POTASSIUM
  3. SUCRALFATE. [Concomitant]
     Active Substance: SUCRALFATE
  4. ALBUTEROL SULFATE. [Concomitant]
     Active Substance: ALBUTEROL SULFATE
  5. LEVOFLOXACIN. [Concomitant]
     Active Substance: LEVOFLOXACIN
  6. CETIRIZINE HCL [Concomitant]
     Active Substance: CETIRIZINE HYDROCHLORIDE
  7. LACTULOSE. [Concomitant]
     Active Substance: LACTULOSE
  8. CLOTRIMAZOLE AND BETAMETHASONE [Concomitant]
     Active Substance: BETAMETHASONE\CLOTRIMAZOLE
  9. METRONIDAZOLE. [Concomitant]
     Active Substance: METRONIDAZOLE
  10. LIDOCAINE PRILOCAINE BIOGARAN [Concomitant]
  11. AMITRIPTYLINE [Concomitant]
     Active Substance: AMITRIPTYLINE
  12. AZTREONAM. [Concomitant]
     Active Substance: AZTREONAM
  13. FAMCICLOVIR. [Concomitant]
     Active Substance: FAMCICLOVIR
  14. VIREAD [Suspect]
     Active Substance: TENOFOVIR DISOPROXIL FUMARATE
     Dosage: 300 UNK
     Route: 065
     Dates: start: 20151125, end: 20180628
  15. LORATADINE. [Concomitant]
     Active Substance: LORATADINE
  16. METOPROLOL TARTRATE. [Concomitant]
     Active Substance: METOPROLOL TARTRATE
  17. LAMIVUDINE. [Concomitant]
     Active Substance: LAMIVUDINE
  18. AMOXICILLIN CLAVULANIC ACID [Concomitant]
     Active Substance: AMOXICILLIN\CLAVULANIC ACID
  19. HEPARIN [Concomitant]
     Active Substance: HEPARIN SODIUM
  20. ZOFRAN [Concomitant]
     Active Substance: ONDANSETRON HYDROCHLORIDE
  21. FOLIC ACID. [Concomitant]
     Active Substance: FOLIC ACID
  22. OXYCODONE/APAP [OXYCODONE;PARACETAMOL] [Concomitant]
  23. AZITHROMYCIN ANHYDROUS. [Concomitant]
     Active Substance: AZITHROMYCIN ANHYDROUS
  24. VITAMIN D [VITAMIN D NOS] [Concomitant]
     Active Substance: VITAMIN D NOS
  25. MOXIFLOXACIN HCL [Concomitant]
     Active Substance: MOXIFLOXACIN
  26. OMEPRAZOLE. [Concomitant]
     Active Substance: OMEPRAZOLE
  27. MINOCYCLINE [Concomitant]
     Active Substance: MINOCYCLINE HYDROCHLORIDE
  28. ONDANSETRON [Concomitant]
     Active Substance: ONDANSETRON
  29. PREZISTA [Concomitant]
     Active Substance: DARUNAVIR ETHANOLATE
  30. TIVICAY [Concomitant]
     Active Substance: DOLUTEGRAVIR SODIUM
  31. SINGULAIR [Concomitant]
     Active Substance: MONTELUKAST SODIUM
  32. FLUCONAZOLE. [Concomitant]
     Active Substance: FLUCONAZOLE
  33. RENVELA [Concomitant]
     Active Substance: SEVELAMER CARBONATE
  34. OYSTER SHELL CALCIUM [Concomitant]
     Active Substance: CALCIUM
  35. ANUCORT?HC [Concomitant]
     Active Substance: HYDROCORTISONE ACETATE
  36. AMLODIPINE BESYLATE. [Concomitant]
     Active Substance: AMLODIPINE BESYLATE
  37. MEPRON [Concomitant]
     Active Substance: ATOVAQUONE
  38. LEVAQUIN [Concomitant]
     Active Substance: LEVOFLOXACIN
  39. ENALAPRIL MALEATE. [Concomitant]
     Active Substance: ENALAPRIL MALEATE
  40. VALACYCLOVIR HCL [Concomitant]
     Active Substance: VALACYCLOVIR HYDROCHLORIDE
  41. MONTELUKAST SODIUM. [Concomitant]
     Active Substance: MONTELUKAST SODIUM
  42. AMOXICILLIN. [Concomitant]
     Active Substance: AMOXICILLIN
  43. BISACODYL. [Concomitant]
     Active Substance: BISACODYL
  44. LORAZEPAM. [Concomitant]
     Active Substance: LORAZEPAM
  45. EXCEDRIN [Concomitant]
     Active Substance: ACETAMINOPHEN\ASPIRIN\CAFFEINE
  46. LINEZOLID. [Concomitant]
     Active Substance: LINEZOLID
  47. REGLAN [Concomitant]
     Active Substance: METOCLOPRAMIDE HYDROCHLORIDE
  48. ZYRTEC [Concomitant]
     Active Substance: CETIRIZINE HYDROCHLORIDE
  49. LEXIVA [Concomitant]
     Active Substance: FOSAMPRENAVIR CALCIUM
  50. PREZCOBIX [Concomitant]
     Active Substance: COBICISTAT\DARUNAVIR ETHANOLATE
  51. FEXOFENADINE HCL [Concomitant]
     Active Substance: FEXOFENADINE HYDROCHLORIDE
  52. CALCIUM CARBONATE. [Concomitant]
     Active Substance: CALCIUM CARBONATE
  53. FLAGYL [Concomitant]
     Active Substance: METRONIDAZOLE\METRONIDAZOLE HYDROCHLORIDE
  54. PHOSLO [Concomitant]
     Active Substance: CALCIUM ACETATE
  55. EPIVIR [Concomitant]
     Active Substance: LAMIVUDINE
  56. KALETRA [Concomitant]
     Active Substance: LOPINAVIR\RITONAVIR
  57. NORVIR [Concomitant]
     Active Substance: RITONAVIR
  58. REYATAZ [Concomitant]
     Active Substance: ATAZANAVIR SULFATE
  59. CEPHALEXIN [CEFALEXIN] [Concomitant]
     Active Substance: CEPHALEXIN
  60. FOSRENOL [Concomitant]
     Active Substance: LANTHANUM CARBONATE
  61. ATORVASTIN [Concomitant]
     Active Substance: ATORVASTATIN
  62. DUONEB [Concomitant]
     Active Substance: ALBUTEROL SULFATE\IPRATROPIUM BROMIDE
  63. MORPHINE [Concomitant]
     Active Substance: MORPHINE
  64. PANTOPRAZOLE [Concomitant]
     Active Substance: PANTOPRAZOLE
  65. PROAIR HFA [Concomitant]
     Active Substance: ALBUTEROL SULFATE
  66. RENAX [ALPRAZOLAM] [Concomitant]
  67. ISENTRESS [Concomitant]
     Active Substance: RALTEGRAVIR POTASSIUM
  68. PIFELTRO [Concomitant]
     Active Substance: DORAVIRINE
  69. CALCIUM ACETATE. [Concomitant]
     Active Substance: CALCIUM ACETATE
  70. DOXYCYCLINE HYCLATE. [Concomitant]
     Active Substance: DOXYCYCLINE HYCLATE
  71. AVELOX [Concomitant]
     Active Substance: MOXIFLOXACIN HYDROCHLORIDE
  72. CLONIDINE HCL [Concomitant]
     Active Substance: CLONIDINE HYDROCHLORIDE
  73. MEDROXYPROGESTERONE [Concomitant]
     Active Substance: MEDROXYPROGESTERONE
  74. ALLEGRA [Concomitant]
     Active Substance: FEXOFENADINE HYDROCHLORIDE
  75. NORVASC [Concomitant]
     Active Substance: AMLODIPINE BESYLATE
  76. PERCOCET [Concomitant]
     Active Substance: ACETAMINOPHEN\OXYCODONE HYDROCHLORIDE
  77. VIREAD [Suspect]
     Active Substance: TENOFOVIR DISOPROXIL FUMARATE
     Dosage: 300 MG
     Route: 065
     Dates: start: 20080509, end: 20170622
  78. VIREAD [Suspect]
     Active Substance: TENOFOVIR DISOPROXIL FUMARATE
     Dosage: UNK
     Route: 065
     Dates: start: 20171007, end: 20180628
  79. ZIAGEN [Concomitant]
     Active Substance: ABACAVIR SULFATE
  80. SENSIPAR [Concomitant]
     Active Substance: CINACALCET HYDROCHLORIDE
  81. ACETAMINOPHEN AND CODEINE [Concomitant]
     Active Substance: ACETAMINOPHEN\CODEINE PHOSPHATE
  82. TUSSIONEX PENNKINETIC [Concomitant]
     Active Substance: CHLORPHENIRAMINE\HYDROCODONE
  83. VITAPLEX [VITAMINS NOS] [Concomitant]
  84. ALAVERT ALLERGY [Concomitant]
     Active Substance: LORATADINE
  85. MULTILEX [Concomitant]
  86. MIDODRINE [Concomitant]
     Active Substance: MIDODRINE
  87. DOCUSATE SODIUM. [Concomitant]
     Active Substance: DOCUSATE SODIUM
  88. DILAUDID [Concomitant]
     Active Substance: HYDROMORPHONE HYDROCHLORIDE
  89. INSULIN [Concomitant]
     Active Substance: INSULIN NOS

REACTIONS (10)
  - Emotional distress [Not Recovered/Not Resolved]
  - Economic problem [Not Recovered/Not Resolved]
  - Renal failure [Unknown]
  - Fatigue [Unknown]
  - Loss of personal independence in daily activities [Unknown]
  - Quality of life decreased [Unknown]
  - Pain [Not Recovered/Not Resolved]
  - End stage renal disease [Not Recovered/Not Resolved]
  - Anhedonia [Not Recovered/Not Resolved]
  - Anxiety [Not Recovered/Not Resolved]

NARRATIVE: CASE EVENT DATE: 2012
